FAERS Safety Report 4674675-6 (Version None)
Quarter: 2005Q2

REPORT INFORMATION
  Report Type: 
  Country: None (occurrence: None)
  Receive Date: 20050526
  Receipt Date: 20050519
  Transmission Date: 20051028
  Serious: Yes (Other)
  Sender: FDA-Public Use
  Company Number: NZ-GLAXOSMITHKLINE-B0381774A

PATIENT
  Age: 52 Year
  Sex: Male

DRUGS (1)
  1. MALARONE [Suspect]
     Indication: DRUG USE FOR UNKNOWN INDICATION
     Route: 065
     Dates: start: 20050310, end: 20050315

REACTIONS (5)
  - HYPERHIDROSIS [None]
  - JAUNDICE [None]
  - MALAISE [None]
  - NAUSEA [None]
  - VOMITING [None]
